FAERS Safety Report 22064767 (Version 1)
Quarter: 2023Q1

REPORT INFORMATION
  Report Type: Spontaneous
  Country: US (occurrence: None)
  Receive Date: 20230303
  Receipt Date: 20230303
  Transmission Date: 20230417
  Serious: Yes (Other)
  Sender: FDA-Public Use
  Company Number: None

PATIENT
  Age: 36 Year
  Sex: Female
  Weight: 82.35 kg

DRUGS (4)
  1. TINIDAZOLE [Suspect]
     Active Substance: TINIDAZOLE
     Indication: Bacterial vaginosis
     Dosage: FREQUENCY : DAILY;?
     Route: 048
     Dates: start: 20230302, end: 20230302
  2. VITAMIN C [Concomitant]
     Active Substance: ASCORBIC ACID
  3. PROBIOTICS NOS [Concomitant]
     Active Substance: PROBIOTICS NOS
  4. VITAMINS [Concomitant]
     Active Substance: VITAMINS

REACTIONS (16)
  - Dizziness [None]
  - Chest discomfort [None]
  - Dyspnoea [None]
  - Paraesthesia [None]
  - Limb discomfort [None]
  - Palpitations [None]
  - Dysphagia [None]
  - Flushing [None]
  - Flushing [None]
  - Genital erythema [None]
  - Swelling face [None]
  - Nausea [None]
  - Fatigue [None]
  - Therapeutic product effect incomplete [None]
  - Post vaccination syndrome [None]
  - Anaphylactic reaction [None]

NARRATIVE: CASE EVENT DATE: 20230302
